FAERS Safety Report 17637393 (Version 1)
Quarter: 2020Q2

REPORT INFORMATION
  Report Type: Spontaneous
  Country: US (occurrence: US)
  Receive Date: 20200406
  Receipt Date: 20200406
  Transmission Date: 20200713
  Serious: No
  Sender: FDA-Public Use
  Company Number: None

PATIENT
  Age: 64 Year
  Sex: Female
  Weight: 48.99 kg

DRUGS (3)
  1. AYURVEDIC HERB: AMRIT [Concomitant]
  2. FLUOROURACIL 5% CRE SPE GENERIC FOR EFUDEX 5% CRE [Suspect]
     Active Substance: FLUOROURACIL
     Indication: ACTINIC KERATOSIS
     Dosage: ?          QUANTITY:40 G GRAM(S);?
     Route: 061
     Dates: start: 20200316, end: 20200320
  3. FLUOROURACIL 5% CRE SPE GENERIC FOR EFUDEX 5% CRE [Suspect]
     Active Substance: FLUOROURACIL
     Indication: SKIN PAPILLOMA
     Dosage: ?          QUANTITY:40 G GRAM(S);?
     Route: 061
     Dates: start: 20200316, end: 20200320

REACTIONS (2)
  - Palpitations [None]
  - Heart rate increased [None]

NARRATIVE: CASE EVENT DATE: 20200317
